FAERS Safety Report 4392248-X (Version None)
Quarter: 2004Q3

REPORT INFORMATION
  Report Type: 
  Country: None (occurrence: None)
  Receive Date: 20040702
  Receipt Date: 20040302
  Transmission Date: 20050211
  Serious: Yes (Other)
  Sender: FDA-Public Use
  Company Number: 2004UW03830

PATIENT
  Age: 75 Year
  Sex: Female
  Weight: 56.246 kg

DRUGS (2)
  1. CRESTOR [Suspect]
     Indication: BLOOD CHOLESTEROL INCREASED
  2. NO MATCH [Concomitant]

REACTIONS (5)
  - DECREASED APPETITE [None]
  - DISSOCIATION [None]
  - HEPATIC ENZYME INCREASED [None]
  - MENTAL IMPAIRMENT [None]
  - MUSCLE CRAMP [None]
